FAERS Safety Report 6271098-3 (Version None)
Quarter: 2009Q3

REPORT INFORMATION
  Report Type: 
  Country: None (occurrence: None)
  Receive Date: 20090716
  Receipt Date: 20090623
  Transmission Date: 20100115
  Serious: Yes (Other)
  Sender: FDA-Public Use
  Company Number: FI-MERCK-0902FIN00002

PATIENT
  Age: 76 Year
  Sex: Male

DRUGS (6)
  1. ISENTRESS [Suspect]
     Indication: HIV INFECTION
     Route: 048
     Dates: start: 20081210, end: 20090209
  2. TENOFOVIR DISOPROXIL FUMARATE AND EMTRICITABINE [Suspect]
     Indication: HIV INFECTION
     Route: 048
     Dates: start: 20081210, end: 20090209
  3. WARFARIN SODIUM [Concomitant]
     Route: 048
  4. DIGOXIN [Concomitant]
     Route: 048
  5. VALSARTAN [Concomitant]
     Route: 048
  6. TEMAZEPAM [Concomitant]
     Route: 048

REACTIONS (1)
  - PLATELET COUNT DECREASED [None]
